FAERS Safety Report 6731391-4 (Version None)
Quarter: 2010Q2

REPORT INFORMATION
  Report Type: 
  Country: None (occurrence: None)
  Receive Date: 20100518
  Receipt Date: 20100518
  Transmission Date: 20101027
  Serious: Yes (Hospitalization)
  Sender: FDA-Public Use
  Company Number: None

PATIENT
  Age: 19 Year
  Sex: Female
  Weight: 63.5036 kg

DRUGS (1)
  1. FENTANYL [Suspect]

REACTIONS (3)
  - ANAESTHETIC COMPLICATION [None]
  - CONVULSION [None]
  - DRUG HYPERSENSITIVITY [None]
